FAERS Safety Report 4894845-1 (Version None)
Quarter: 2006Q1

REPORT INFORMATION
  Report Type: 
  Country: None (occurrence: None)
  Receive Date: 20060124
  Receipt Date: 20060116
  Transmission Date: 20060701
  Serious: Yes (Hospitalization)
  Sender: FDA-Public Use
  Company Number: 13253

PATIENT
  Age: 63 Year
  Sex: Female
  Weight: 69 kg

DRUGS (3)
  1. FLUOROURACIL [Suspect]
     Indication: VULVAL CANCER
     Dosage: 1800 MG PER_CYCLE IV
     Route: 042
     Dates: start: 20050905
  2. MITOMYCIN [Suspect]
     Indication: VULVAL CANCER
     Dosage: 20 MG PER_CYCLE IV
     Route: 042
     Dates: start: 20050905
  3. ORAMORPH SR [Concomitant]

REACTIONS (4)
  - DYSURIA [None]
  - NEUTROPENIC SEPSIS [None]
  - PAINFUL DEFAECATION [None]
  - VULVAL CANCER [None]
